FAERS Safety Report 8350249-0 (Version None)
Quarter: 2012Q2

REPORT INFORMATION
  Report Type: 
  Country: None (occurrence: None)
  Receive Date: 20120510
  Receipt Date: 20120504
  Transmission Date: 20120825
  Serious: Yes (Hospitalization)
  Sender: FDA-Public Use
  Company Number: FR-ROCHE-1051949

PATIENT
  Sex: Female

DRUGS (2)
  1. TAXOL [Concomitant]
     Indication: BREAST CANCER METASTATIC
  2. AVASTIN [Suspect]
     Indication: BREAST CANCER METASTATIC

REACTIONS (3)
  - RENAL FAILURE [None]
  - SKIN LESION [None]
  - SEPTIC SHOCK [None]
